FAERS Safety Report 7128249-8 (Version None)
Quarter: 2010Q4

REPORT INFORMATION
  Report Type: 
  Country: None (occurrence: None)
  Receive Date: 20101103
  Receipt Date: 20101028
  Transmission Date: 20110411
  Serious: Yes (Death, Hospitalization)
  Sender: FDA-Public Use
  Company Number: 2010SP057492

PATIENT
  Age: 46 Year
  Sex: Male

DRUGS (7)
  1. INTRON A [Suspect]
     Indication: HEPATITIS C
     Dosage: SC
     Route: 058
     Dates: start: 20011201, end: 20020701
  2. RIBAVIRIN [Suspect]
     Indication: HEPATITIS C
     Dosage: BID;PO ; BID;PO
     Route: 048
     Dates: start: 20011201, end: 20020701
  3. RIBAVIRIN [Suspect]
     Indication: HEPATITIS C
     Dosage: BID;PO ; BID;PO
     Route: 048
     Dates: start: 20031201
  4. PEGASYS [Suspect]
     Indication: HEPATITIS C
     Dates: start: 20031201
  5. ERYTHROPOIETIN [Suspect]
     Indication: PRODUCT USED FOR UNKNOWN INDICATION
     Dosage: 60000 IU
     Dates: start: 20011201, end: 20011201
  6. ERYTHROPOIETIN [Suspect]
     Indication: PRODUCT USED FOR UNKNOWN INDICATION
     Dosage: 60000 IU
     Dates: start: 20020201, end: 20020201
  7. ERYTHROPOIETIN [Suspect]
     Indication: PRODUCT USED FOR UNKNOWN INDICATION
     Dosage: 60000 IU
     Dates: start: 20031219, end: 20031219

REACTIONS (8)
  - DIARRHOEA [None]
  - DRUG INEFFECTIVE [None]
  - HAEMATOCHEZIA [None]
  - INTESTINAL ISCHAEMIA [None]
  - LARGE INTESTINE PERFORATION [None]
  - PERITONEAL ADHESIONS [None]
  - PERITONITIS [None]
  - PNEUMONIA [None]
